FAERS Safety Report 8053832-5 (Version None)
Quarter: 2012Q1

REPORT INFORMATION
  Report Type: 
  Country: None (occurrence: None)
  Receive Date: 20120118
  Receipt Date: 20120113
  Transmission Date: 20120608
  Serious: Yes (Hospitalization)
  Sender: FDA-Public Use
  Company Number: US-PFIZER INC-2012010997

PATIENT
  Sex: Male
  Weight: 102 kg

DRUGS (8)
  1. LASIX [Concomitant]
     Indication: DIURETIC THERAPY
     Dosage: 20 MG, DAILY
  2. COZAAR [Concomitant]
     Indication: DRUG THERAPY
     Dosage: 25 MG, DAILY
  3. LIPITOR [Suspect]
     Indication: BLOOD CHOLESTEROL INCREASED
     Dosage: 20 MG, DAILY AT NIGHT
     Route: 048
     Dates: start: 20101101
  4. ASPIRIN [Concomitant]
     Indication: ANTICOAGULANT THERAPY
     Dosage: 81 MG, DAILY
  5. PLAVIX [Concomitant]
     Indication: ANTICOAGULANT THERAPY
     Dosage: 75 MG, DAILY
  6. ZANTAC [Concomitant]
     Indication: GASTROOESOPHAGEAL REFLUX DISEASE
     Dosage: 75 MG, 2X/DAY
  7. LIPITOR [Suspect]
     Dosage: 40 MG, DAILY AT NIGHT
     Route: 048
  8. CARVEDILOL [Concomitant]
     Indication: DRUG THERAPY
     Dosage: HALF PILL OF 12.5 MG, 2X/DAY

REACTIONS (2)
  - CARDIAC FAILURE CONGESTIVE [None]
  - MYOCARDIAL INFARCTION [None]
